FAERS Safety Report 6706613-6 (Version None)
Quarter: 2010Q2

REPORT INFORMATION
  Report Type: 
  Country: None (occurrence: None)
  Receive Date: 20100503
  Receipt Date: 20100428
  Transmission Date: 20101027
  Serious: Yes (Death, Other)
  Sender: FDA-Public Use
  Company Number: MY-GENZYME-POMP-1000927

PATIENT
  Age: 24 Month
  Sex: Male

DRUGS (2)
  1. MYOZYME [Suspect]
     Indication: GLYCOGEN STORAGE DISEASE TYPE II
     Dosage: UNK
     Route: 042
  2. GLYCOPYRROLATE [Concomitant]
     Indication: GASTROOESOPHAGEAL REFLUX DISEASE
     Route: 048

REACTIONS (8)
  - CALCULUS BLADDER [None]
  - FEEDING DISORDER [None]
  - FEMUR FRACTURE [None]
  - NEPHROCALCINOSIS [None]
  - OSTEOPENIA [None]
  - PNEUMONIA [None]
  - RESPIRATORY FAILURE [None]
  - SUBACUTE ENDOCARDITIS [None]
